FAERS Safety Report 8133876-5 (Version None)
Quarter: 2012Q1

REPORT INFORMATION
  Report Type: 
  Country: None (occurrence: None)
  Receive Date: 20120213
  Receipt Date: 20120202
  Transmission Date: 20120608
  Serious: Yes (Hospitalization, Other)
  Sender: FDA-Public Use
  Company Number: US-ELI_LILLY_AND_COMPANY-US201202001420

PATIENT
  Sex: Female

DRUGS (4)
  1. EVISTA [Suspect]
     Indication: OSTEOPOROSIS PROPHYLAXIS
     Dosage: 60 MG, QD
  2. LIPITOR [Concomitant]
     Dosage: UNK, QD
  3. ANTIHYPERTENSIVES [Concomitant]
     Dosage: UNK, QD
  4. OMEPRAZOLE [Concomitant]
     Indication: DYSPEPSIA
     Dosage: UNK, QD

REACTIONS (2)
  - ATRIAL FIBRILLATION [None]
  - AORTIC ANEURYSM [None]
